FAERS Safety Report 6081063-7 (Version None)
Quarter: 2009Q1

REPORT INFORMATION
  Report Type: 
  Country: None (occurrence: None)
  Receive Date: 20090217
  Receipt Date: 20090208
  Transmission Date: 20090719
  Serious: Yes (Death)
  Sender: FDA-Public Use
  Company Number: CN-BAXTER-2009BH002337

PATIENT
  Age: 70 Year
  Sex: Male

DRUGS (3)
  1. CYCLOPHOSPHAMIDE [Suspect]
     Indication: MICROSCOPIC POLYANGIITIS
     Route: 042
  2. CYCLOPHOSPHAMIDE [Suspect]
     Route: 065
  3. PREDNISONE [Concomitant]
     Indication: MICROSCOPIC POLYANGIITIS
     Route: 048

REACTIONS (2)
  - LEUKOPENIA [None]
  - RESPIRATORY TRACT INFECTION [None]
